FAERS Safety Report 22223071 (Version 4)
Quarter: 2023Q2

REPORT INFORMATION
  Report Type: Report from Study
  Country: IE (occurrence: None)
  Receive Date: 20230418
  Receipt Date: 20230515
  Transmission Date: 20230722
  Serious: Yes (Life-Threatening, Hospitalization)
  Sender: FDA-Public Use
  Company Number: IE-Eisai Medical Research-EC-2023-138304

PATIENT
  Age: 45 Year
  Sex: Male
  Weight: 87.9 kg

DRUGS (10)
  1. LENVATINIB [Suspect]
     Active Substance: LENVATINIB
     Indication: Renal cell carcinoma
     Route: 048
     Dates: start: 20221207, end: 20230329
  2. BELZUTIFAN [Suspect]
     Active Substance: BELZUTIFAN
     Indication: Renal cell carcinoma
     Route: 048
     Dates: start: 20221207, end: 20230329
  3. ELIQUIS [Concomitant]
     Active Substance: APIXABAN
     Dates: start: 202201
  4. FEXOFENADINE [Concomitant]
     Active Substance: FEXOFENADINE HYDROCHLORIDE
     Dates: start: 202204
  5. ACETAMINOPHEN\CODEINE PHOSPHATE [Concomitant]
     Active Substance: ACETAMINOPHEN\CODEINE PHOSPHATE
     Dates: start: 202001
  6. ACETAMINOPHEN [Concomitant]
     Active Substance: ACETAMINOPHEN
     Dates: start: 20221209
  7. TADALAFIL [Concomitant]
     Active Substance: TADALAFIL
     Dates: start: 20230104
  8. BETNOVATE [Concomitant]
     Active Substance: BETAMETHASONE
     Dates: start: 20230118
  9. IRON [Concomitant]
     Active Substance: IRON
     Dates: start: 20230228
  10. PLIAZON [CERAMIDE;PALMITIC ACID;PARAFFIN, LIQUID;PHYTOMENADIONE;PHYTOS [Concomitant]
     Dates: start: 20230329

REACTIONS (1)
  - Pneumonia [Not Recovered/Not Resolved]

NARRATIVE: CASE EVENT DATE: 20230410
